FAERS Safety Report 17767056 (Version 7)
Quarter: 2021Q1

REPORT INFORMATION
  Report Type: Report from Study
  Country: IL (occurrence: IL)
  Receive Date: 20200511
  Receipt Date: 20210212
  Transmission Date: 20210419
  Serious: Yes (Hospitalization, Other)
  Sender: FDA-Public Use
  Company Number: PHHY2018IL182714

PATIENT
  Age: 74 Year
  Sex: Female

DRUGS (5)
  1. REVOLADE [Suspect]
     Active Substance: ELTROMBOPAG OLAMINE
     Dosage: 50 MG, QD
     Route: 048
  2. REVOLADE [Suspect]
     Active Substance: ELTROMBOPAG OLAMINE
     Dosage: 50 MG, QD
     Route: 048
  3. REVOLADE [Suspect]
     Active Substance: ELTROMBOPAG OLAMINE
     Dosage: 50 MG, QD
     Route: 048
     Dates: start: 20190214, end: 20190516
  4. TARGIN [Concomitant]
     Active Substance: NALOXONE HYDROCHLORIDE\OXYCODONE HYDROCHLORIDE
     Indication: PAIN
     Dosage: UNK
     Route: 065
  5. REVOLADE [Suspect]
     Active Substance: ELTROMBOPAG OLAMINE
     Indication: IMMUNE THROMBOCYTOPENIA
     Dosage: 50 MG, QD
     Route: 048
     Dates: start: 20181120, end: 20190206

REACTIONS (25)
  - Abdominal pain [Not Recovered/Not Resolved]
  - Haemoglobin decreased [Recovering/Resolving]
  - Gait disturbance [Not Recovered/Not Resolved]
  - Myocardial infarction [Recovered/Resolved]
  - Platelet count decreased [Unknown]
  - Mouth haemorrhage [Recovered/Resolved]
  - Asthenia [Not Recovered/Not Resolved]
  - Concomitant disease aggravated [Not Recovered/Not Resolved]
  - Liver scan abnormal [Recovered/Resolved]
  - Fatigue [Not Recovered/Not Resolved]
  - Pain in extremity [Not Recovered/Not Resolved]
  - Diarrhoea [Not Recovered/Not Resolved]
  - Epistaxis [Recovered/Resolved]
  - Pruritus [Not Recovered/Not Resolved]
  - Skin discolouration [Recovered/Resolved]
  - Back pain [Recovering/Resolving]
  - Hypoaesthesia [Recovered/Resolved]
  - Muscle spasms [Not Recovered/Not Resolved]
  - Fall [Recovered/Resolved]
  - Hypertension [Not Recovered/Not Resolved]
  - Gingival pain [Recovered/Resolved]
  - Myalgia [Not Recovered/Not Resolved]
  - Epistaxis [Recovered/Resolved]
  - Inflammation [Not Recovered/Not Resolved]
  - Labelled drug-food interaction medication error [Recovered/Resolved]

NARRATIVE: CASE EVENT DATE: 20181204
